FAERS Safety Report 6240016-6 (Version None)
Quarter: 2009Q2

REPORT INFORMATION
  Report Type: 
  Country: None (occurrence: None)
  Receive Date: 20090623
  Receipt Date: 20090613
  Transmission Date: 20091009
  Serious: Yes (Other)
  Sender: FDA-Public Use
  Company Number: PHHY2009MX23496

PATIENT
  Age: 45 Year
  Sex: Male

DRUGS (2)
  1. STALEVO 100 [Suspect]
     Indication: PARKINSON'S DISEASE
     Dosage: 2 DF, PER DAY
     Route: 048
     Dates: start: 20080401, end: 20090301
  2. STALEVO 100 [Suspect]
     Dosage: UNK
     Route: 048

REACTIONS (8)
  - ABASIA [None]
  - DRUG INEFFECTIVE [None]
  - FALL [None]
  - INCREASED UPPER AIRWAY SECRETION [None]
  - MUSCULOSKELETAL STIFFNESS [None]
  - NERVOUSNESS [None]
  - SINUSITIS [None]
  - TREMOR [None]
